FAERS Safety Report 5898031-8 (Version None)
Quarter: 2008Q3

REPORT INFORMATION
  Report Type: 
  Country: None (occurrence: None)
  Receive Date: 20080924
  Receipt Date: 20080924
  Transmission Date: 20090109
  Serious: No
  Sender: FDA-Public Use
  Company Number: None

PATIENT
  Sex: Female
  Weight: 4.53 kg

DRUGS (12)
  1. DAUNORUBICIN HYDROCHLORIDE [Suspect]
     Dosage: 14MG
     Dates: end: 20080810
  2. METHOTREXATE [Suspect]
     Dosage: 22.5 MG
     Dates: end: 20080825
  3. PEG-L -ASPARAGINASE (K- H)- [Suspect]
     Dosage: 600  IU
  4. VINCRISTINE SULFATE [Suspect]
     Dosage: .52MG
  5. CYCLOPHOSPHAMIDE [Suspect]
     Dosage: 240 MG
     Dates: end: 20080813
  6. CYTARABINE [Suspect]
     Dosage: 45 MG
     Dates: end: 20080825
  7. ACTIGALL [Concomitant]
  8. CIPROFLOXACIN [Concomitant]
  9. DAPSONE [Concomitant]
  10. FILGRASTIM (GCSF) [Concomitant]
  11. TYLENOL (CAPLET) [Concomitant]
  12. VITAMIN E [Concomitant]

REACTIONS (7)
  - ABDOMINAL DISTENSION [None]
  - ALANINE AMINOTRANSFERASE INCREASED [None]
  - ASCITES [None]
  - BLOOD BILIRUBIN INCREASED [None]
  - HEPATOMEGALY [None]
  - HEPATOTOXICITY [None]
  - VENOOCCLUSIVE LIVER DISEASE [None]
